FAERS Safety Report 8441267-2 (Version None)
Quarter: 2012Q2

REPORT INFORMATION
  Report Type: 
  Country: None (occurrence: None)
  Receive Date: 20120615
  Receipt Date: 20110804
  Transmission Date: 20120825
  Serious: No
  Sender: FDA-Public Use
  Company Number: US-NOVEN-11US002931

PATIENT
  Sex: Male
  Weight: 29.932 kg

DRUGS (1)
  1. DAYTRANA [Suspect]
     Indication: ATTENTION DEFICIT/HYPERACTIVITY DISORDER
     Dosage: 10 MG, UNK
     Route: 062
     Dates: start: 20110716

REACTIONS (1)
  - APPLICATION SITE RASH [None]
